FAERS Safety Report 5416753-X (Version None)
Quarter: 2007Q3

REPORT INFORMATION
  Report Type: 
  Country: None (occurrence: None)
  Receive Date: 20070816
  Receipt Date: 20070813
  Transmission Date: 20080115
  Serious: Yes (Hospitalization)
  Sender: FDA-Public Use
  Company Number: A0669395A

PATIENT
  Sex: Male

DRUGS (5)
  1. ECOTRIN REGULAR STRENGTH TABLETS [Suspect]
     Route: 048
  2. ECOTRIN ADULT LOW STRENGTH TABLETS [Suspect]
     Route: 048
  3. VERAPAMIL [Concomitant]
  4. NITROGLYCERIN [Concomitant]
  5. BLOOD PRESSURE MEDICATION [Concomitant]

REACTIONS (8)
  - ANAEMIA [None]
  - AORTIC ANEURYSM [None]
  - GAIT DISTURBANCE [None]
  - GASTRIC ULCER HAEMORRHAGE [None]
  - HAEMATOCRIT DECREASED [None]
  - HAEMOGLOBIN DECREASED [None]
  - HAEMOPTYSIS [None]
  - MUSCLE ATROPHY [None]
